FAERS Safety Report 6317124-4 (Version None)
Quarter: 2009Q3

REPORT INFORMATION
  Report Type: 
  Country: None (occurrence: None)
  Receive Date: 20090819
  Receipt Date: 20090710
  Transmission Date: 20100115
  Serious: Yes (Other)
  Sender: FDA-Public Use
  Company Number: PD105

PATIENT
  Age: 5 Year

DRUGS (1)
  1. LEVETIRACETAM [Suspect]
     Indication: PARTIAL SEIZURES

REACTIONS (3)
  - AGGRESSION [None]
  - IRRITABILITY [None]
  - MAJOR DEPRESSION [None]
